FAERS Safety Report 8788965 (Version 2)
Quarter: 2012Q4

REPORT INFORMATION
  Report Type: 
  Country: US (occurrence: US)
  Receive Date: 20120917
  Receipt Date: 20121024
  Transmission Date: 20130627
  Serious: No
  Sender: FDA-Public Use
  Company Number: US-PFIZER INC-2012226741

PATIENT
  Age: 86 Year
  Sex: Female
  Weight: 56.69 kg

DRUGS (7)
  1. TIKOSYN [Suspect]
     Indication: CARDIAC DISORDER
     Dosage: 0.5 mg, 2x/day
     Route: 048
  2. ACICLOVIR [Interacting]
     Indication: HERPES ZOSTER
     Dosage: UNK, 5x/day
     Dates: start: 201209
  3. CARTIA XT [Concomitant]
     Dosage: 120 mg, 2x/day
  4. WARFARIN [Concomitant]
     Dosage: 3 mg, 1x/day
  5. ISOSORBIDE [Concomitant]
     Dosage: 60 mg, 1x/day
  6. POTASSIUM [Concomitant]
     Dosage: 20 mEq, UNK
  7. CARDIZEM [Concomitant]
     Dosage: 60 mg, UNK

REACTIONS (2)
  - Drug interaction [Unknown]
  - Cardiac disorder [Not Recovered/Not Resolved]
